FAERS Safety Report 13108288 (Version 1)
Quarter: 2017Q1

REPORT INFORMATION
  Report Type: Spontaneous
  Country: US (occurrence: US)
  Receive Date: 20170112
  Receipt Date: 20170112
  Transmission Date: 20170428
  Serious: No
  Sender: FDA-Public Use
  Company Number: US-009507513-1701USA004577

PATIENT
  Age: 17 Year
  Sex: Female
  Weight: 69.84 kg

DRUGS (1)
  1. NEXPLANON [Suspect]
     Active Substance: ETONOGESTREL
     Indication: CONTRACEPTION
     Dosage: 1 DF, FOR 3 YEARS, IN THE LEFT ARM
     Route: 059
     Dates: start: 20170104

REACTIONS (1)
  - Migration of implanted drug [Not Recovered/Not Resolved]

NARRATIVE: CASE EVENT DATE: 201701
